FAERS Safety Report 5291368-5 (Version None)
Quarter: 2007Q2

REPORT INFORMATION
  Report Type: 
  Country: None (occurrence: None)
  Receive Date: 20070402
  Receipt Date: 20070316
  Transmission Date: 20071010
  Serious: Yes (Death)
  Sender: FDA-Public Use
  Company Number: 2007JP001139

PATIENT
  Age: 6 Month
  Sex: Female

DRUGS (2)
  1. PROGRAF [Suspect]
     Indication: STEM CELL TRANSPLANT
  2. METHOTREXATE FORMULATION UNKNOWN UNK TO UNK [Concomitant]

REACTIONS (2)
  - COMPLICATIONS OF TRANSPLANT SURGERY [None]
  - PNEUMONIA CYTOMEGALOVIRAL [None]
